FAERS Safety Report 4956082-1 (Version None)
Quarter: 2006Q1

REPORT INFORMATION
  Report Type: 
  Country: None (occurrence: None)
  Receive Date: 20060328
  Receipt Date: 20050317
  Transmission Date: 20060701
  Serious: Yes (Hospitalization, Disabling, Other)
  Sender: FDA-Public Use
  Company Number: US-MERCK-0503USA03413

PATIENT
  Age: 37 Year
  Sex: Female
  Weight: 57 kg

DRUGS (7)
  1. VIOXX [Suspect]
     Indication: SHOULDER PAIN
     Route: 048
     Dates: start: 20030101, end: 20041101
  2. VICODIN [Concomitant]
     Route: 065
  3. LEXAPRO [Concomitant]
     Route: 065
  4. NEURONTIN [Concomitant]
     Route: 065
  5. DURAGESIC-100 [Concomitant]
     Route: 065
  6. AMBIEN [Concomitant]
     Route: 065
  7. FERROUS SULFATE [Concomitant]
     Route: 065

REACTIONS (24)
  - ANAEMIA [None]
  - BACK PAIN [None]
  - BLOOD SODIUM DECREASED [None]
  - BRONCHITIS [None]
  - CEREBROVASCULAR ACCIDENT [None]
  - CONVULSION [None]
  - DEPRESSED LEVEL OF CONSCIOUSNESS [None]
  - DEPRESSION [None]
  - DERMATITIS CONTACT [None]
  - FALL [None]
  - GASTROINTESTINAL HAEMORRHAGE [None]
  - HAEMOPTYSIS [None]
  - HEADACHE [None]
  - HEMIANOPIA HETERONYMOUS [None]
  - HEPATIC ENZYME INCREASED [None]
  - HEPATITIS [None]
  - HYPERREFLEXIA [None]
  - HYPOKALAEMIA [None]
  - MUSCLE SPASTICITY [None]
  - MUSCULOSKELETAL CHEST PAIN [None]
  - NEURALGIA [None]
  - TREMOR [None]
  - VERTIGO POSITIONAL [None]
  - VISION BLURRED [None]
